FAERS Safety Report 13301912 (Version 1)
Quarter: 2017Q1

REPORT INFORMATION
  Report Type: Spontaneous
  Country: SE (occurrence: SE)
  Receive Date: 20170307
  Receipt Date: 20170307
  Transmission Date: 20170428
  Serious: Yes (Other)
  Sender: FDA-Public Use
  Company Number: SE-GLAXOSMITHKLINE-SE2017029806

PATIENT
  Age: 42 Year
  Sex: Female

DRUGS (8)
  1. LERGIGAN COMP. [Interacting]
     Active Substance: CAFFEINE\EPHEDRINE\PROMETHAZINE
     Indication: DIZZINESS
     Dosage: AS REQUIRED 1 TABLET UP TO 3 TIMES A DAY
     Route: 065
  2. LERGIGAN COMP. [Interacting]
     Active Substance: CAFFEINE\EPHEDRINE\PROMETHAZINE
     Indication: NAUSEA
  3. CETIRIZINE [Interacting]
     Active Substance: CETIRIZINE HYDROCHLORIDE
     Indication: HYPERSENSITIVITY
     Dosage: 1-4 TABLETS PER DAY
     Route: 065
     Dates: start: 2016
  4. TAVEGYL [Interacting]
     Active Substance: CLEMASTINE FUMARATE
     Indication: HYPERSENSITIVITY
     Dosage: 1 MG, QD
     Route: 065
     Dates: start: 2000
  5. ZYBAN [Suspect]
     Active Substance: BUPROPION HYDROCHLORIDE
     Indication: FATIGUE
     Dosage: 150 MG, QD
     Route: 065
     Dates: start: 20160701, end: 20170214
  6. SUMATRIPTAN. [Interacting]
     Active Substance: SUMATRIPTAN
     Indication: MIGRAINE
     Dosage: 1-2 TABLETS AT ATTACKS
     Route: 065
  7. IMIGRAN [Interacting]
     Active Substance: SUMATRIPTAN SUCCINATE
     Indication: MIGRAINE
     Dosage: 1 INJECTION PER ANTACK, UP TO TWO A DAY
     Route: 065
     Dates: start: 20170101
  8. RINEXIN [Interacting]
     Active Substance: PHENYLPROPANOLAMINE
     Indication: HYPERSENSITIVITY
     Dosage: 50 MG, BID
     Route: 065
     Dates: start: 2005

REACTIONS (9)
  - Dizziness [Recovered/Resolved]
  - Drug interaction [Recovered/Resolved]
  - Palpitations [Recovered/Resolved]
  - Feeling of body temperature change [Recovered/Resolved]
  - Anxiety [Recovered/Resolved]
  - Nausea [Recovered/Resolved]
  - Chills [Recovered/Resolved]
  - Muscle spasms [Recovered/Resolved]
  - Headache [Recovered/Resolved]

NARRATIVE: CASE EVENT DATE: 2016
